FAERS Safety Report 11930400 (Version 1)
Quarter: 2016Q1

REPORT INFORMATION
  Report Type: Spontaneous
  Country: US (occurrence: None)
  Receive Date: 20160120
  Receipt Date: 20160120
  Transmission Date: 20160526
  Serious: Yes (Hospitalization)
  Sender: FDA-Public Use
  Company Number: None

PATIENT
  Age: 54 Year
  Sex: Male
  Weight: 114.1 kg

DRUGS (4)
  1. RIFAMPIN. [Suspect]
     Active Substance: RIFAMPIN
     Indication: STAPHYLOCOCCAL BACTERAEMIA
     Route: 048
     Dates: start: 20150923, end: 20151006
  2. RIFAMPIN. [Suspect]
     Active Substance: RIFAMPIN
     Indication: DEVICE RELATED INFECTION
     Route: 048
     Dates: start: 20150923, end: 20151006
  3. CEFAZOLIN [Suspect]
     Active Substance: CEFAZOLIN
     Indication: STAPHYLOCOCCAL BACTERAEMIA
     Route: 042
     Dates: start: 20150923, end: 20151006
  4. CEFAZOLIN [Suspect]
     Active Substance: CEFAZOLIN
     Indication: DEVICE RELATED INFECTION
     Route: 042
     Dates: start: 20150923, end: 20151006

REACTIONS (6)
  - Rash [None]
  - Vomiting [None]
  - Pruritus [None]
  - Dyspnoea [None]
  - Nausea [None]
  - Malaise [None]

NARRATIVE: CASE EVENT DATE: 20151006
